FAERS Safety Report 7938640-5 (Version None)
Quarter: 2011Q4

REPORT INFORMATION
  Report Type: 
  Country: None (occurrence: None)
  Receive Date: 20111123
  Receipt Date: 20111116
  Transmission Date: 20120403
  Serious: Yes (Disabling, Other)
  Sender: FDA-Public Use
  Company Number: US-MERCK-1107USA02915

PATIENT
  Age: 71 Year
  Sex: Female

DRUGS (3)
  1. FOSAMAX [Suspect]
     Indication: OSTEOPOROSIS
     Route: 048
     Dates: start: 20020101, end: 20090101
  2. ALENDRONATE SODIUM [Suspect]
     Route: 048
     Dates: start: 20080901, end: 20080101
  3. FOSAMAX [Suspect]
     Route: 048
     Dates: start: 20080601

REACTIONS (31)
  - OSTEORADIONECROSIS [None]
  - NAUSEA [None]
  - ALOPECIA [None]
  - BLOOD GLUCOSE ABNORMAL [None]
  - GINGIVITIS [None]
  - OSTEONECROSIS [None]
  - BRONCHITIS [None]
  - DIARRHOEA [None]
  - MUSCLE STRAIN [None]
  - SEASONAL ALLERGY [None]
  - OSTEONECROSIS OF JAW [None]
  - ABSCESS [None]
  - CHRONIC OBSTRUCTIVE PULMONARY DISEASE [None]
  - CONSTIPATION [None]
  - ORAL INFECTION [None]
  - NEUROPATHY PERIPHERAL [None]
  - RASH [None]
  - HYPERTENSION [None]
  - BONE DISORDER [None]
  - OSTEOMYELITIS [None]
  - ORAL TORUS [None]
  - TOOTH FRACTURE [None]
  - DRUG HYPERSENSITIVITY [None]
  - HEAD INJURY [None]
  - IMPAIRED HEALING [None]
  - LEUKOPLAKIA ORAL [None]
  - EXOSTOSIS [None]
  - JAW DISORDER [None]
  - ACTINOMYCOSIS [None]
  - ORAL DISORDER [None]
  - DRUG INTOLERANCE [None]
